FAERS Safety Report 16010718 (Version 1)
Quarter: 2019Q1

REPORT INFORMATION
  Report Type: Spontaneous
  Country: CA (occurrence: CA)
  Receive Date: 20190227
  Receipt Date: 20190227
  Transmission Date: 20190418
  Serious: Yes (Life-Threatening, Hospitalization)
  Sender: FDA-Public Use
  Company Number: CA-009507513-1902CAN009830

PATIENT
  Age: 59 Year
  Sex: Female

DRUGS (13)
  1. COZAAR [Suspect]
     Active Substance: LOSARTAN POTASSIUM
     Indication: PRODUCT USED FOR UNKNOWN INDICATION
     Dosage: UNK
     Route: 065
  2. ADVIL [Suspect]
     Active Substance: IBUPROFEN
     Indication: PRODUCT USED FOR UNKNOWN INDICATION
     Dosage: UNK
     Route: 065
  3. NAPROXEN. [Suspect]
     Active Substance: NAPROXEN
     Indication: PRODUCT USED FOR UNKNOWN INDICATION
     Route: 065
  4. NAPROXEN. [Suspect]
     Active Substance: NAPROXEN
     Dosage: UNK
     Route: 065
  5. DIAMICRON [Concomitant]
     Active Substance: GLICLAZIDE
  6. ASPIRIN. [Concomitant]
     Active Substance: ASPIRIN
  7. COZAAR [Suspect]
     Active Substance: LOSARTAN POTASSIUM
     Dosage: 50 MILLIGRAM, QD
     Route: 048
  8. CIPROFLOXACIN HYDROCHLORIDE. [Suspect]
     Active Substance: CIPROFLOXACIN HYDROCHLORIDE
     Dosage: UNK
     Route: 065
  9. ADVIL [Concomitant]
     Active Substance: IBUPROFEN
  10. METFORMIN HYDROCHLORIDE (+) SITAGLIPTIN PHOSPHATE [Concomitant]
     Active Substance: METFORMIN HYDROCHLORIDE\SITAGLIPTIN PHOSPHATE
  11. CIPROFLOXACIN HYDROCHLORIDE. [Suspect]
     Active Substance: CIPROFLOXACIN HYDROCHLORIDE
     Indication: ASYMPTOMATIC BACTERIURIA
     Dosage: 1000 MILLIGRAM, QD
     Route: 048
  12. ACETAMINOPHEN. [Concomitant]
     Active Substance: ACETAMINOPHEN
  13. LIPIDIL SUPRA [Concomitant]
     Active Substance: FENOFIBRATE

REACTIONS (6)
  - Blood creatinine increased [Recovered/Resolved]
  - Blood calcium decreased [Recovered/Resolved]
  - Blood phosphorus increased [Recovered/Resolved]
  - Tubulointerstitial nephritis [Recovered/Resolved]
  - Hyperglycaemia [Recovered/Resolved]
  - Acute kidney injury [Recovered/Resolved]
